FAERS Safety Report 6968975-4 (Version None)
Quarter: 2010Q3

REPORT INFORMATION
  Report Type: 
  Country: None (occurrence: None)
  Receive Date: 20100907
  Receipt Date: 20100831
  Transmission Date: 20110219
  Serious: Yes (Other)
  Sender: FDA-Public Use
  Company Number: JP-SANOFI-AVENTIS-2010SA052769

PATIENT

DRUGS (2)
  1. ARAVA [Suspect]
     Indication: RHEUMATOID ARTHRITIS
     Dosage: INITIAL DOSE, 100MG/DAY FOR 3 DAYS
     Route: 048
  2. ARAVA [Suspect]
     Dosage: MAINTENANCE DOSE 10 MG OR 20 MG
     Route: 048

REACTIONS (1)
  - CHOLECYSTITIS [None]
